FAERS Safety Report 6872065-9 (Version None)
Quarter: 2010Q3

REPORT INFORMATION
  Report Type: 
  Country: None (occurrence: None)
  Receive Date: 20100723
  Receipt Date: 20100712
  Transmission Date: 20110219
  Serious: Yes (Other)
  Sender: FDA-Public Use
  Company Number: SE-PFIZER INC-2010067841

PATIENT
  Age: 70 Year
  Sex: Female

DRUGS (2)
  1. XALATAN [Suspect]
     Indication: GLAUCOMA
     Dosage: 1 DROP AT NIGHT
     Route: 047
     Dates: start: 20100507, end: 20100531
  2. SANDIMMUNE [Concomitant]
     Dosage: UNK

REACTIONS (5)
  - ERYTHEMA [None]
  - PHOTOSENSITIVITY REACTION [None]
  - RASH [None]
  - REACTION TO PRESERVATIVES [None]
  - SWELLING FACE [None]
